FAERS Safety Report 17821766 (Version 2)
Quarter: 2020Q3

REPORT INFORMATION
  Report Type: Spontaneous
  Country: FR (occurrence: FR)
  Receive Date: 20200525
  Receipt Date: 20200710
  Transmission Date: 20201102
  Serious: Yes (Other)
  Sender: FDA-Public Use
  Company Number: FR-TAKEDA-2020TUS023508

PATIENT
  Age: 67 Year
  Sex: Female

DRUGS (12)
  1. FIBROGAMMIN [Suspect]
     Active Substance: FACTOR XIII CONCENTRATE (HUMAN)
     Indication: ABDOMINAL WALL HAEMATOMA
     Dosage: UNK
     Route: 065
  2. TRANEXAMIC ACID. [Concomitant]
     Active Substance: TRANEXAMIC ACID
     Indication: PRODUCT USED FOR UNKNOWN INDICATION
     Dosage: UNK
     Route: 065
  3. RITUXIMAB. [Suspect]
     Active Substance: RITUXIMAB
     Indication: FACTOR XIII INHIBITION
     Dosage: UNK
     Route: 065
  4. VELCADE [Suspect]
     Active Substance: BORTEZOMIB
     Indication: FACTOR XIII INHIBITION
     Dosage: UNK
     Route: 065
  5. FIBROGAMMIN [Suspect]
     Active Substance: FACTOR XIII CONCENTRATE (HUMAN)
     Indication: FACTOR XIII INHIBITION
     Dosage: 22 INTERNATIONAL UNIT/KILOGRAM
     Route: 065
  6. RITUXIMAB. [Suspect]
     Active Substance: RITUXIMAB
     Indication: HAEMATOMA MUSCLE
  7. FIBROGAMMIN [Suspect]
     Active Substance: FACTOR XIII CONCENTRATE (HUMAN)
     Indication: FACTOR XIII DEFICIENCY
  8. VELCADE [Suspect]
     Active Substance: BORTEZOMIB
     Indication: HAEMATOMA MUSCLE
  9. FIBROGAMMIN [Suspect]
     Active Substance: FACTOR XIII CONCENTRATE (HUMAN)
     Indication: PULMONARY HAEMATOMA
     Dosage: 44 INTERNATIONAL UNIT/KILOGRAM
     Route: 065
  10. CYCLOPHOSPHAMIDE. [Suspect]
     Active Substance: CYCLOPHOSPHAMIDE
     Indication: FACTOR XIII INHIBITION
     Dosage: UNK
     Route: 065
  11. FIBROGAMMIN [Suspect]
     Active Substance: FACTOR XIII CONCENTRATE (HUMAN)
     Indication: ABDOMINAL WALL HAEMATOMA
     Dosage: UNK
     Route: 065
  12. CYCLOPHOSPHAMIDE. [Suspect]
     Active Substance: CYCLOPHOSPHAMIDE
     Indication: HAEMATOMA MUSCLE

REACTIONS (6)
  - Product use in unapproved indication [Unknown]
  - Deep vein thrombosis [Unknown]
  - Off label use [Unknown]
  - Pulmonary embolism [Unknown]
  - Drug ineffective [Unknown]
  - Drug ineffective for unapproved indication [Unknown]
